FAERS Safety Report 18749401 (Version 2)
Quarter: 2022Q2

REPORT INFORMATION
  Report Type: Report from Study
  Country: CA (occurrence: CA)
  Receive Date: 20210116
  Receipt Date: 20220522
  Transmission Date: 20220721
  Serious: Yes (Other)
  Sender: FDA-Public Use
  Company Number: CA-NOVARTISPH-NVSC2020CA262899

PATIENT
  Sex: Male

DRUGS (1)
  1. MAYZENT [Suspect]
     Active Substance: SIPONIMOD
     Indication: Secondary progressive multiple sclerosis
     Dosage: UNK
     Route: 048
     Dates: start: 20200911

REACTIONS (6)
  - Cataract [Unknown]
  - Glaucoma [Unknown]
  - Pyrexia [Unknown]
  - Nasopharyngitis [Unknown]
  - Astigmatism [Unknown]
  - Illness [Unknown]

NARRATIVE: CASE EVENT DATE: 20200101
